FAERS Safety Report 5386392-8 (Version None)
Quarter: 2007Q3

REPORT INFORMATION
  Report Type: 
  Country: None (occurrence: None)
  Receive Date: 20070710
  Receipt Date: 20070710
  Transmission Date: 20080115
  Serious: Yes (Hospitalization)
  Sender: FDA-Public Use
  Company Number: None

PATIENT
  Sex: Male
  Weight: 79.5 kg

DRUGS (1)
  1. CISPLATIN [Suspect]
     Dosage: 190 MG
     Dates: end: 20070521

REACTIONS (4)
  - CHILLS [None]
  - DELIRIUM [None]
  - PYREXIA [None]
  - WHITE BLOOD CELL COUNT DECREASED [None]
